FAERS Safety Report 5296765-X (Version None)
Quarter: 2007Q2

REPORT INFORMATION
  Report Type: 
  Country: None (occurrence: None)
  Receive Date: 20070413
  Receipt Date: 20070403
  Transmission Date: 20071010
  Serious: Yes (Other)
  Sender: FDA-Public Use
  Company Number: NL-MERCK-0704NLD00006

PATIENT
  Age: 51 Year
  Sex: Male

DRUGS (2)
  1. ZETIA [Suspect]
     Indication: HYPERCHOLESTEROLAEMIA
     Route: 048
     Dates: start: 20060901
  2. PRAVASTATIN SODIUM [Concomitant]
     Indication: HYPERCHOLESTEROLAEMIA
     Route: 048
     Dates: start: 19970101

REACTIONS (6)
  - ALOPECIA [None]
  - DIZZINESS [None]
  - MICTURITION DISORDER [None]
  - MUSCLE SPASMS [None]
  - PARAESTHESIA [None]
  - SLEEP DISORDER [None]
